FAERS Safety Report 6645897-X (Version None)
Quarter: 2010Q1

REPORT INFORMATION
  Report Type: 
  Country: None (occurrence: None)
  Receive Date: 20100323
  Receipt Date: 20100311
  Transmission Date: 20100710
  Serious: Yes (Hospitalization)
  Sender: FDA-Public Use
  Company Number: PHHY2009GB47402

PATIENT
  Sex: Female

DRUGS (6)
  1. TASIGNA [Suspect]
     Indication: CHRONIC MYELOID LEUKAEMIA
     Dosage: 400 MG, UNK
     Dates: start: 20090401
  2. RAMIPRIL [Concomitant]
  3. SPIRIVA [Concomitant]
  4. FUROSEMIDE [Concomitant]
  5. STEROIDS NOS [Concomitant]
  6. AUGMENTIN [Concomitant]

REACTIONS (5)
  - DIARRHOEA [None]
  - GASTRITIS [None]
  - LOWER RESPIRATORY TRACT INFECTION [None]
  - NAUSEA [None]
  - VOMITING [None]
